FAERS Safety Report 8213744-0 (Version None)
Quarter: 2012Q1

REPORT INFORMATION
  Report Type: 
  Country: None (occurrence: None)
  Receive Date: 20120316
  Receipt Date: 20120308
  Transmission Date: 20120608
  Serious: Yes (Death, Life-Threatening, Hospitalization)
  Sender: FDA-Public Use
  Company Number: FR-BRISTOL-MYERS SQUIBB COMPANY-16429896

PATIENT
  Age: 46 Year
  Sex: Male

DRUGS (1)
  1. LYSODREN [Suspect]
     Indication: ADRENOCORTICAL CARCINOMA
     Dosage: START DT(UNKNW-20DEC2011,2GM,11JAN2012-29JAN2012,1.5GM).REINTRODUCED WITH 3TABS/DAY.
     Dates: end: 20120129

REACTIONS (6)
  - COMA [None]
  - ALTERED STATE OF CONSCIOUSNESS [None]
  - ADRENAL INSUFFICIENCY [None]
  - CARDIAC ARREST [None]
  - AGGRESSION [None]
  - SOMNOLENCE [None]
